FAERS Safety Report 19588346 (Version 1)
Quarter: 2021Q3

REPORT INFORMATION
  Report Type: Spontaneous
  Country: US (occurrence: US)
  Receive Date: 20210721
  Receipt Date: 20210721
  Transmission Date: 20211014
  Serious: No
  Sender: FDA-Public Use
  Company Number: None

PATIENT
  Sex: Female

DRUGS (4)
  1. AIMOVIG [Suspect]
     Active Substance: ERENUMAB-AOOE
     Indication: MIGRAINE
     Dosage: ?          OTHER FREQUENCY:MONTHLY;?
     Route: 058
     Dates: start: 20190909
  2. IMITREX 100 MG [Concomitant]
     Dates: start: 20190307
  3. AMBEIN 10 MG [Concomitant]
     Dates: start: 20190307
  4. ASPIRIN 81 MG [Concomitant]
     Active Substance: ASPIRIN
     Dates: start: 20190307

REACTIONS (1)
  - Constipation [None]
